FAERS Safety Report 16827666 (Version 4)
Quarter: 2019Q4

REPORT INFORMATION
  Report Type: Report from Study
  Country: CO (occurrence: CO)
  Receive Date: 20190919
  Receipt Date: 20191115
  Transmission Date: 20200122
  Serious: Yes (Hospitalization, Other)
  Sender: FDA-Public Use
  Company Number: CO-ASTELLAS-2019US026845

PATIENT
  Age: 44 Year
  Sex: Male

DRUGS (2)
  1. MYCOPHENOLATE [Concomitant]
     Active Substance: MYCOPHENOLIC ACID
     Indication: RENAL TRANSPLANT
     Route: 065
  2. TACROLIMUS. [Suspect]
     Active Substance: TACROLIMUS
     Indication: RENAL TRANSPLANT
     Dosage: 6 MG, ONCE DAILY (2 CAPSULES OF 3MG)
     Route: 048
     Dates: start: 20170301

REACTIONS (11)
  - Fall [Recovering/Resolving]
  - Abdominal pain upper [Recovering/Resolving]
  - Blood sodium decreased [Recovered/Resolved]
  - Hepatic cyst ruptured [Recovered/Resolved]
  - Pyrexia [Recovered/Resolved]
  - Influenza [Unknown]
  - Cerebral cyst [Recovering/Resolving]
  - Amnesia [Recovered/Resolved]
  - Limb discomfort [Unknown]
  - Foot fracture [Recovering/Resolving]
  - Haemoglobin decreased [Unknown]

NARRATIVE: CASE EVENT DATE: 201906
